FAERS Safety Report 23681685 (Version 3)
Quarter: 2025Q1

REPORT INFORMATION
  Report Type: Spontaneous
  Country: US (occurrence: US)
  Receive Date: 20240328
  Receipt Date: 20250324
  Transmission Date: 20250409
  Serious: No
  Sender: TEVA
  Company Number: US-TEVA-VS-3148865

PATIENT
  Age: 72 Year
  Sex: Female
  Weight: 88.9 kg

DRUGS (2)
  1. AJOVY [Suspect]
     Active Substance: FREMANEZUMAB-VFRM
     Indication: Migraine
     Dosage: 225/1.5 MG/ML, AUTOINJECTOR
     Route: 065
  2. AJOVY [Suspect]
     Active Substance: FREMANEZUMAB-VFRM

REACTIONS (4)
  - Migraine [Not Recovered/Not Resolved]
  - Product dose omission issue [Unknown]
  - Product use issue [Unknown]
  - Economic problem [Unknown]

NARRATIVE: CASE EVENT DATE: 20231201
